FAERS Safety Report 7293447-X (Version None)
Quarter: 2011Q1

REPORT INFORMATION
  Report Type: 
  Country: None (occurrence: None)
  Receive Date: 20110215
  Receipt Date: 20110209
  Transmission Date: 20110831
  Serious: No
  Sender: FDA-Public Use
  Company Number: US-PFIZER INC-US-WYE-H15494110

PATIENT
  Sex: Female

DRUGS (3)
  1. XANAX [Suspect]
     Dosage: 1.0 DF, 3X/DAY
     Route: 065
     Dates: end: 20100530
  2. XANAX [Suspect]
     Dosage: 1.0 DF, 1X/DAY
     Route: 065
     Dates: start: 20100531
  3. PRISTIQ [Suspect]
     Dosage: 50.0 MG, 1X/DAY
     Route: 048
     Dates: start: 20100530

REACTIONS (11)
  - PALPITATIONS [None]
  - CRYING [None]
  - FEELING ABNORMAL [None]
  - GAIT DISTURBANCE [None]
  - FALL [None]
  - WEIGHT DECREASED [None]
  - HYPERHIDROSIS [None]
  - INSOMNIA [None]
  - NERVOUSNESS [None]
  - IMPAIRED DRIVING ABILITY [None]
  - DECREASED APPETITE [None]
